FAERS Safety Report 9267042 (Version 1)
Quarter: 2013Q2

REPORT INFORMATION
  Report Type: Spontaneous
  Country: BR (occurrence: BR)
  Receive Date: 20130502
  Receipt Date: 20130502
  Transmission Date: 20140414
  Serious: Yes (Other)
  Sender: FDA-Public Use
  Company Number: BR-SANOFI-AVENTIS-2013SA042943

PATIENT
  Age: 60 Year
  Sex: Female
  Weight: 60 kg

DRUGS (14)
  1. DOCETAXEL [Suspect]
     Indication: BREAST CANCER
     Route: 065
     Dates: start: 20120803
  2. DOCETAXEL [Suspect]
     Indication: BREAST CANCER
     Route: 065
     Dates: start: 20120824
  3. DOCETAXEL [Suspect]
     Indication: BREAST CANCER
     Route: 065
     Dates: start: 20120914
  4. TRASTUZUMAB [Suspect]
     Indication: BREAST CANCER
     Route: 065
     Dates: start: 20120803
  5. TRASTUZUMAB [Suspect]
     Indication: BREAST CANCER
     Route: 065
     Dates: start: 20120829
  6. TRASTUZUMAB [Suspect]
     Indication: BREAST CANCER
     Route: 065
     Dates: start: 20120919
  7. TRASTUZUMAB [Suspect]
     Indication: BREAST CANCER
     Route: 065
     Dates: start: 20121220, end: 20121220
  8. FLUOROURACIL [Suspect]
     Indication: BREAST CANCER
     Route: 065
     Dates: start: 201205, end: 201207
  9. DOXORUBICIN [Suspect]
     Indication: BREAST CANCER
     Route: 065
     Dates: start: 201205, end: 201207
  10. CYCLOPHOSPHAMIDE [Suspect]
     Indication: BREAST CANCER
     Route: 065
     Dates: start: 201205, end: 201207
  11. AMBROXOL [Concomitant]
     Route: 048
     Dates: start: 20121218, end: 20130117
  12. TAMOXIFEN CITRATE [Concomitant]
     Route: 048
     Dates: start: 20121218, end: 20130117
  13. PROPRANOLOL [Concomitant]
     Indication: HYPERTENSION
  14. ATENOLOL [Concomitant]
     Indication: HYPERTENSION

REACTIONS (2)
  - Cyanosis [Recovered/Resolved]
  - Tremor [Recovered/Resolved]
